FAERS Safety Report 20563470 (Version 1)
Quarter: 2022Q1

REPORT INFORMATION
  Report Type: Spontaneous
  Country: CA (occurrence: CA)
  Receive Date: 20220308
  Receipt Date: 20220308
  Transmission Date: 20220424
  Serious: Yes (Hospitalization)
  Sender: FDA-Public Use
  Company Number: CA-TEVA-2022-CA-2012723

PATIENT
  Age: 19 Year
  Sex: Male
  Weight: 120 kg

DRUGS (16)
  1. TOPOTECAN HYDROCHLORIDE [Suspect]
     Active Substance: TOPOTECAN HYDROCHLORIDE
     Indication: Neoplasm malignant
     Dosage: 1.88 MILLIGRAM DAILY;
     Route: 042
  2. CYCLOPHOSPHAMIDE [Suspect]
     Active Substance: CYCLOPHOSPHAMIDE
     Indication: Neoplasm malignant
     Dosage: 620 MILLIGRAM DAILY;
     Route: 042
  3. VENETOCLAX [Suspect]
     Active Substance: VENETOCLAX
     Indication: Neoplasm malignant
     Route: 048
  4. CANNABIS SATIVA FLOWERING TOP [Concomitant]
     Active Substance: CANNABIS SATIVA FLOWERING TOP
     Indication: Nausea
     Dosage: 4 DOSAGE FORMS DAILY;
     Route: 050
  5. HYDROMORPHONE [Concomitant]
     Active Substance: HYDROMORPHONE
     Indication: Myalgia
     Dosage: 8 MILLIGRAM DAILY;
     Route: 065
  6. LORAZEPAM [Concomitant]
     Active Substance: LORAZEPAM
     Indication: Nausea
     Dosage: 4 MILLIGRAM DAILY;
     Route: 042
  7. LORAZEPAM [Concomitant]
     Active Substance: LORAZEPAM
     Dosage: 4 MILLIGRAM DAILY;
     Route: 060
  8. LORAZEPAM [Concomitant]
     Active Substance: LORAZEPAM
     Dosage: 4 MILLIGRAM DAILY;
     Route: 042
  9. LORAZEPAM [Concomitant]
     Active Substance: LORAZEPAM
     Dosage: 3 MILLIGRAM DAILY;
     Route: 048
  10. LORAZEPAM [Concomitant]
     Active Substance: LORAZEPAM
     Dosage: 4 MILLIGRAM DAILY;
     Route: 060
  11. LORAZEPAM [Concomitant]
     Active Substance: LORAZEPAM
     Dosage: 4 MILLIGRAM DAILY;
     Route: 042
  12. LORAZEPAM [Concomitant]
     Active Substance: LORAZEPAM
     Dosage: 4 MILLIGRAM DAILY;
     Route: 042
  13. LORAZEPAM [Concomitant]
     Active Substance: LORAZEPAM
     Dosage: 2 MILLIGRAM DAILY;
     Route: 048
  14. ONDANSETRON [Concomitant]
     Active Substance: ONDANSETRON
     Indication: Nausea
     Route: 048
  15. ONDANSETRON [Concomitant]
     Active Substance: ONDANSETRON
     Dosage: 16.0 MILLIGRAM
     Route: 048
  16. SILDENAFIL [Concomitant]
     Active Substance: SILDENAFIL
     Indication: Erectile dysfunction
     Dosage: 25 MILLIGRAM DAILY;
     Route: 048

REACTIONS (7)
  - Discomfort [Unknown]
  - Dyspnoea [Unknown]
  - Febrile neutropenia [Unknown]
  - Headache [Unknown]
  - Pallor [Unknown]
  - Pyrexia [Unknown]
  - Vomiting [Unknown]
